FAERS Safety Report 10560671 (Version 1)
Quarter: 2014Q4

REPORT INFORMATION
  Report Type: Spontaneous
  Country: US (occurrence: None)
  Receive Date: 20141031
  Receipt Date: 20141031
  Transmission Date: 20150529
  Serious: Yes (Hospitalization)
  Sender: FDA-Public Use
  Company Number: None

PATIENT
  Age: 28 Year
  Sex: Female
  Weight: 64 kg

DRUGS (1)
  1. GADOBENATE DIMEGLUMINE [Suspect]
     Active Substance: GADOBENATE DIMEGLUMINE
     Indication: NUCLEAR MAGNETIC RESONANCE IMAGING
     Route: 030

REACTIONS (5)
  - Emotional distress [None]
  - Pruritus [None]
  - Throat irritation [None]
  - Dysphagia [None]
  - Urticaria [None]

NARRATIVE: CASE EVENT DATE: 20140124
